FAERS Safety Report 20657284 (Version 2)
Quarter: 2022Q2

REPORT INFORMATION
  Report Type: Report from Study
  Country: US (occurrence: US)
  Receive Date: 20220331
  Receipt Date: 20220421
  Transmission Date: 20220720
  Serious: Yes (Hospitalization)
  Sender: FDA-Public Use
  Company Number: US-BRISTOL-MYERS SQUIBB COMPANY-2022-010975

PATIENT
  Age: 69 Year
  Sex: Male
  Weight: 136.08 kg

DRUGS (1)
  1. REVLIMID [Suspect]
     Active Substance: LENALIDOMIDE
     Indication: Plasma cell myeloma
     Dosage: CAPS-21/BTL?FREQUENCY: DAILY DAYS 1-14, 21 DAYS CYCLE
     Route: 048

REACTIONS (7)
  - Bile duct stent insertion [Unknown]
  - Jaundice [Unknown]
  - Diarrhoea [Unknown]
  - Constipation [Unknown]
  - Rash [Unknown]
  - Peripheral swelling [Unknown]
  - Product dose omission issue [Unknown]

NARRATIVE: CASE EVENT DATE: 20220313
